FAERS Safety Report 23885314 (Version 5)
Quarter: 2024Q3

REPORT INFORMATION
  Report Type: Spontaneous
  Country: US (occurrence: US)
  Receive Date: 20240522
  Receipt Date: 20240725
  Transmission Date: 20241017
  Serious: No
  Sender: PFIZER
  Company Number: US-PFIZER INC-PV202400066003

PATIENT
  Age: 62 Year
  Sex: Female
  Weight: 100.9 kg

DRUGS (2)
  1. XALKORI [Suspect]
     Active Substance: CRIZOTINIB
     Indication: Adenocarcinoma of colon
     Dosage: 250 MG, 2X/DAY
  2. XALKORI [Suspect]
     Active Substance: CRIZOTINIB
     Dosage: 200 MG, 2X/DAY (WITH OR WITHOUT FOOD; DO NOT CRUSH, DISSOLVE, OR OPEN CAPSULES)
     Route: 048

REACTIONS (3)
  - Brain fog [Not Recovered/Not Resolved]
  - Dysphonia [Not Recovered/Not Resolved]
  - Off label use [Unknown]
